FAERS Safety Report 6371598-1 (Version None)
Quarter: 2009Q3

REPORT INFORMATION
  Report Type: 
  Country: None (occurrence: None)
  Receive Date: 20090923
  Receipt Date: 20071221
  Transmission Date: 20100115
  Serious: Yes (Other)
  Sender: FDA-Public Use
  Company Number: US-ASTRAZENECA-2007UW18710

PATIENT
  Age: 49 Year
  Sex: Female
  Weight: 63.5 kg

DRUGS (44)
  1. SEROQUEL [Suspect]
     Indication: BIPOLAR DISORDER
     Dosage: 25MG-50MG
     Route: 048
     Dates: start: 20000101, end: 20070101
  2. SEROQUEL [Suspect]
     Dosage: 25-400 MG
     Route: 048
     Dates: start: 20011105
  3. SEROQUEL [Suspect]
     Route: 048
     Dates: start: 20050101
  4. ABILIFY [Concomitant]
     Dates: start: 20000101
  5. ABILIFY [Concomitant]
     Dates: start: 20070207
  6. CLONAZEPAM [Concomitant]
     Dates: start: 20010124
  7. ROZEREM [Concomitant]
     Indication: SLEEP DISORDER
     Dates: start: 20051110
  8. LEVAQUIN [Concomitant]
     Dates: start: 20061110
  9. CYMBALTA [Concomitant]
     Dosage: 30-60 MG
     Dates: start: 20040915
  10. HUMIBID LA [Concomitant]
     Dosage: 600/120
     Dates: start: 20040801
  11. TOPAMAX [Concomitant]
     Dates: start: 20011227
  12. VALTREX [Concomitant]
     Dates: start: 20070418
  13. KLOR-CON [Concomitant]
     Dosage: 10-20
     Dates: start: 20040607
  14. PHENAZOPYRIDINE HCL TAB [Concomitant]
     Dates: start: 20071009
  15. NAPROXEN SODIUM [Concomitant]
     Dates: start: 20010615
  16. ALLEGRA [Concomitant]
     Dosage: 120-180 MG
     Dates: start: 20010831
  17. PREMARIN [Concomitant]
     Dosage: 0.625-1.25 MG
     Dates: start: 20010507
  18. BUSPIRONE HCL [Concomitant]
     Dates: start: 20010530
  19. LORAZEPAM [Concomitant]
     Dates: start: 20010613
  20. FIORICET [Concomitant]
     Dates: start: 20010709
  21. AVANDIA [Concomitant]
     Dates: start: 20010820
  22. NEURONTIN [Concomitant]
     Dosage: 300-600 MG
     Dates: start: 20010831
  23. IMITREX [Concomitant]
     Dates: start: 20010904
  24. ZOLOFT [Concomitant]
     Dates: start: 20011012
  25. AMBIEN [Concomitant]
     Dates: start: 20011012
  26. DEPAKOTE ER [Concomitant]
     Dates: start: 20011105
  27. MOBIC [Concomitant]
     Dates: start: 20011114
  28. ACCOLATE [Concomitant]
     Dates: start: 20011213
  29. ZYRTEC [Concomitant]
     Dates: start: 20021004
  30. LONOX [Concomitant]
     Dates: start: 20020619
  31. ASACOL [Concomitant]
     Dates: start: 20020808
  32. CELEBREX [Concomitant]
     Dates: start: 20020912
  33. PAXIL CR [Concomitant]
     Dosage: 12.5-20 MG
     Dates: start: 20030518
  34. SKELAXIN [Concomitant]
     Dates: start: 20030518
  35. CARBAMAZEPINE [Concomitant]
     Dates: start: 20031029
  36. EFFEXOR XR [Concomitant]
     Dates: start: 20031029
  37. BENZONATATE [Concomitant]
     Dates: start: 20031218
  38. PREDNISONE [Concomitant]
     Dates: start: 20040224
  39. ACYCLOVIR [Concomitant]
     Dates: start: 20040224
  40. LEXAPRO [Concomitant]
     Dates: start: 20040530
  41. FUROSEMIDE [Concomitant]
     Dates: start: 20040801
  42. ZETIA [Concomitant]
     Dates: start: 20050220
  43. CARISOPRODOL [Concomitant]
     Dates: start: 20050307
  44. PROCHLORPERAZINE [Concomitant]
     Dates: start: 20050307

REACTIONS (12)
  - ACCIDENT [None]
  - BLOOD CHOLESTEROL INCREASED [None]
  - BLOOD TRIGLYCERIDES INCREASED [None]
  - HYPERGLYCAEMIA [None]
  - INSULIN RESISTANCE [None]
  - IRRITABLE BOWEL SYNDROME [None]
  - OBESITY [None]
  - PANCREATITIS [None]
  - POLYP [None]
  - SPINAL COMPRESSION FRACTURE [None]
  - SPINAL OSTEOARTHRITIS [None]
  - TYPE 2 DIABETES MELLITUS [None]
